FAERS Safety Report 18710243 (Version 1)
Quarter: 2021Q1

REPORT INFORMATION
  Report Type: Other
  Country: US (occurrence: US)
  Receive Date: 20210107
  Receipt Date: 20210107
  Transmission Date: 20210419
  Serious: Yes (Other)
  Sender: FDA-Public Use
  Company Number: US-ROCHE-2745076

PATIENT

DRUGS (1)
  1. TOCILIZUMAB. [Suspect]
     Active Substance: TOCILIZUMAB
     Indication: COVID-19
     Route: 042

REACTIONS (5)
  - Pseudomonas infection [Unknown]
  - Staphylococcal infection [Unknown]
  - Off label use [Unknown]
  - Stenotrophomonas infection [Unknown]
  - Intentional product use issue [Unknown]
